FAERS Safety Report 6268271-7 (Version None)
Quarter: 2009Q3

REPORT INFORMATION
  Report Type: 
  Country: None (occurrence: None)
  Receive Date: 20090715
  Receipt Date: 20090709
  Transmission Date: 20100115
  Serious: Yes (Disabling)
  Sender: FDA-Public Use
  Company Number: NL-JNJFOC-20090703448

PATIENT
  Sex: Male
  Weight: 108 kg

DRUGS (3)
  1. RISPERDAL [Suspect]
     Route: 065
  2. RISPERDAL [Suspect]
     Indication: MENTAL DISORDER
     Route: 065
  3. CITALOPRAM A [Suspect]
     Indication: MENTAL DISORDER
     Route: 065

REACTIONS (3)
  - ERECTILE DYSFUNCTION [None]
  - FLUID RETENTION [None]
  - WEIGHT INCREASED [None]
